FAERS Safety Report 7747445-X (Version None)
Quarter: 2011Q3

REPORT INFORMATION
  Report Type: 
  Country: None (occurrence: None)
  Receive Date: 20110913
  Receipt Date: 20110901
  Transmission Date: 20111222
  Serious: Yes (Other)
  Sender: FDA-Public Use
  Company Number: JP-SANOFI-AVENTIS-2011SA057009

PATIENT
  Age: 67 Year
  Sex: Female

DRUGS (1)
  1. PLAVIX [Suspect]
     Dosage: THERAPY START DATE 30 MAY 2011
     Route: 065
     Dates: start: 20110101, end: 20110101

REACTIONS (1)
  - INTERSTITIAL LUNG DISEASE [None]
